FAERS Safety Report 6736474-0 (Version None)
Quarter: 2010Q2

REPORT INFORMATION
  Report Type: 
  Country: None (occurrence: None)
  Receive Date: 20100521
  Receipt Date: 20100514
  Transmission Date: 20101027
  Serious: Yes (Life-Threatening, Hospitalization, Other)
  Sender: FDA-Public Use
  Company Number: US-BRISTOL-MYERS SQUIBB COMPANY-15108921

PATIENT
  Age: 9 Year
  Sex: Male
  Weight: 28 kg

DRUGS (12)
  1. DASATINIB [Suspect]
     Indication: EWING'S SARCOMA
     Route: 048
     Dates: start: 20090325, end: 20090413
  2. IFOSFAMIDE [Suspect]
     Indication: EWING'S SARCOMA
     Dosage: STRENGTH: 1800MG/M2/DOSE DOSE: 5 ON 23MAY2010
     Route: 042
     Dates: start: 20090318, end: 20100323
  3. CARBOPLATIN [Suspect]
     Indication: EWING'S SARCOMA
     Dosage: STRENGTH: 410MG/M2
     Route: 042
     Dates: start: 20090318, end: 20090319
  4. ETOPOSIDE [Suspect]
     Indication: EWING'S SARCOMA
     Dosage: STRENGTH: 110MG/M2/ DOSE
     Route: 042
     Dates: start: 20090318, end: 20090322
  5. BENADRYL [Concomitant]
     Route: 042
  6. BACTRIM [Concomitant]
  7. BIOTENE MOUTHWASH [Concomitant]
  8. NYSTATIN [Concomitant]
  9. PEPCID [Concomitant]
  10. SYNTHROID [Concomitant]
     Route: 048
  11. ZOFRAN [Concomitant]
     Route: 042
  12. SCOPOLAMINE [Concomitant]
     Route: 062

REACTIONS (5)
  - FEBRILE NEUTROPENIA [None]
  - GASTROINTESTINAL HAEMORRHAGE [None]
  - INFECTION [None]
  - RASH MACULO-PAPULAR [None]
  - SOMNOLENCE [None]
